FAERS Safety Report 6715040-7 (Version None)
Quarter: 2010Q2

REPORT INFORMATION
  Report Type: 
  Country: None (occurrence: None)
  Receive Date: 20100507
  Receipt Date: 20100426
  Transmission Date: 20101027
  Serious: Yes (Hospitalization)
  Sender: FDA-Public Use
  Company Number: JP-PFIZER INC-2010053404

PATIENT
  Age: 72 Year
  Sex: Male
  Weight: 79.1 kg

DRUGS (17)
  1. SUNITINIB MALATE [Suspect]
     Indication: RENAL CELL CARCINOMA
     Dosage: 50 MG, 1X/DAY
     Dates: start: 20091105
  2. VALSARTAN [Concomitant]
     Dosage: UNK
     Route: 048
  3. PURSENNID [Concomitant]
     Dosage: UNK
     Route: 048
  4. MOBIC [Concomitant]
     Dosage: UNK
     Route: 048
  5. OXYCONTIN [Concomitant]
     Dosage: UNK
     Route: 048
  6. ALLOPURINOL [Concomitant]
     Dosage: UNK
     Route: 048
  7. URSO 250 [Concomitant]
     Dosage: UNK
     Route: 048
  8. KALIMATE [Concomitant]
     Dosage: UNK
     Route: 048
  9. DAI-KENCHU-TO [Concomitant]
     Dosage: UNK
     Route: 048
  10. PASTARON [Concomitant]
     Dosage: UNK
     Route: 062
     Dates: start: 20091106
  11. TELEMINSOFT [Concomitant]
     Dosage: UNK
     Route: 054
     Dates: start: 20091105
  12. LAXOBERON [Concomitant]
     Dosage: UNK
     Route: 048
     Dates: start: 20091109
  13. ZOMETA [Concomitant]
     Dosage: UNK
     Route: 042
  14. SODIUM CHLORIDE [Concomitant]
     Dosage: UNK
     Route: 042
  15. AMLODIN [Concomitant]
     Dosage: UNK
     Route: 048
     Dates: start: 20091122
  16. MAG-LAX [Concomitant]
     Dosage: UNK
     Route: 048
     Dates: start: 20091120
  17. FLUITRAN [Concomitant]
     Dosage: UNK
     Route: 048
     Dates: start: 20091217

REACTIONS (1)
  - LUNG ABSCESS [None]
